FAERS Safety Report 21816790 (Version 1)
Quarter: 2023Q1

REPORT INFORMATION
  Report Type: Spontaneous
  Country: GB (occurrence: GB)
  Receive Date: 20230104
  Receipt Date: 20230104
  Transmission Date: 20230417
  Serious: Yes (Other)
  Sender: FDA-Public Use
  Company Number: None

PATIENT
  Age: 80 Year
  Sex: Female
  Weight: 78 kg

DRUGS (12)
  1. AMLODIPINE [Suspect]
     Active Substance: AMLODIPINE BESYLATE
     Indication: Product used for unknown indication
     Dosage: 5 MILLIGRAM, QD
     Route: 065
     Dates: start: 20221219
  2. ALOGLIPTIN [Concomitant]
     Active Substance: ALOGLIPTIN
     Dosage: 1 DOSAGE FORM, QD
     Route: 065
     Dates: start: 20210505
  3. AMOXICILLIN [Concomitant]
     Active Substance: AMOXICILLIN
     Dosage: 1 DOSAGE FORM, TID
     Route: 065
     Dates: start: 20221209, end: 20221216
  4. ATENOLOL [Concomitant]
     Active Substance: ATENOLOL
     Dosage: 0.5 DOSAGE FORM, QD
     Route: 065
     Dates: start: 20200106
  5. BENDROFLUMETHIAZIDE [Concomitant]
     Active Substance: BENDROFLUMETHIAZIDE
     Dosage: 1 DOSAGE FORM, QD (EACH MORNING)
     Route: 065
     Dates: start: 20190513
  6. DOXAZOSIN [Concomitant]
     Active Substance: DOXAZOSIN MESYLATE
     Dosage: 0.5 DOSAGE FORM, QD
     Route: 065
     Dates: start: 20190124
  7. FOLIC ACID [Concomitant]
     Active Substance: FOLIC ACID
     Dosage: 1 DOSAGE FORM, QD
     Route: 065
     Dates: start: 20181203
  8. GLICLAZIDE [Concomitant]
     Active Substance: GLICLAZIDE
     Dosage: 1 DOSAGE FORM, TID (MORNING, LUNCHTIME AND EVENING)
     Route: 065
     Dates: start: 20160407
  9. HUMULIN L [Concomitant]
     Active Substance: INSULIN HUMAN
     Dosage: UNK (USE AS DIRECTED)
     Route: 065
     Dates: start: 20211011
  10. LERCANIDIPINE HYDROCHLORIDE [Concomitant]
     Active Substance: LERCANIDIPINE HYDROCHLORIDE
     Dosage: 1 DOSAGE FORM, QD
     Route: 065
     Dates: start: 20221221
  11. MICARDIS [Concomitant]
     Active Substance: TELMISARTAN
     Dosage: 1 DOSAGE FORM, QD
     Route: 065
     Dates: start: 20030425
  12. PRAVASTATIN [Concomitant]
     Active Substance: PRAVASTATIN
     Indication: Blood cholesterol increased
     Dosage: 1 DOSAGE FORM, QD (AT NIGHT)
     Route: 065
     Dates: start: 20220118

REACTIONS (3)
  - Drug hypersensitivity [Unknown]
  - Peripheral swelling [Recovered/Resolved]
  - Joint swelling [Unknown]
